FAERS Safety Report 12755059 (Version 1)
Quarter: 2016Q3

REPORT INFORMATION
  Report Type: Spontaneous
  Country: None (occurrence: US)
  Receive Date: 20160916
  Receipt Date: 20160916
  Transmission Date: 20161109
  Serious: No
  Sender: FDA-Public Use
  Company Number: US-RARE DISEASE THERAPEUTICS, INC.-1057374

PATIENT
  Age: 63 Year
  Sex: Female
  Weight: 81.65 kg

DRUGS (13)
  1. MAGNESIUM [Concomitant]
     Active Substance: MAGNESIUM
  2. ARMOUR THYROID [Concomitant]
     Active Substance: THYROID, PORCINE
  3. VITAMIN D3DIETARY SUPPLEMEN DIETARY SUPPLEMENT [Concomitant]
     Active Substance: ALPHA-TOCOPHEROL\CHOLECALCIFEROL
  4. CALCIUM [Concomitant]
     Active Substance: CALCIUM
  5. L-TRYPTOPHAN [Concomitant]
     Active Substance: TRYPTOPHAN
  6. VITAMIN B-COMPLEX [Concomitant]
     Active Substance: DEXPANTHENOL\NIACINAMIDE\PYRIDOXINE HYDROCHLORIDE\RIBOFLAVIN 5^-PHOSPHATE SODIUM\THIAMINE HYDROCHLORIDE
  7. KRILL OMEGA RED OIL [Concomitant]
  8. CYSTADANE [Suspect]
     Active Substance: BETAINE
     Dates: start: 20160901
  9. CYSTADANE [Suspect]
     Active Substance: BETAINE
     Dates: start: 20160719, end: 20160831
  10. FOLIC ACID. [Concomitant]
     Active Substance: FOLIC ACID
  11. VITAMIN B12 [Concomitant]
     Active Substance: CYANOCOBALAMIN
  12. PROBIOTICS NOS [Concomitant]
     Active Substance: PROBIOTICS NOS
  13. MELATONIN [Concomitant]
     Active Substance: MELATONIN

REACTIONS (4)
  - Irritability [Recovering/Resolving]
  - Libido decreased [Recovering/Resolving]
  - Anxiety [Recovering/Resolving]
  - Depression [Recovering/Resolving]

NARRATIVE: CASE EVENT DATE: 20160819
